FAERS Safety Report 8002503-X (Version None)
Quarter: 2011Q4

REPORT INFORMATION
  Report Type: 
  Country: None (occurrence: None)
  Receive Date: 20111222
  Receipt Date: 20110207
  Transmission Date: 20120403
  Serious: No
  Sender: FDA-Public Use
  Company Number: US-BRISTOL-MYERS SQUIBB COMPANY-15537210

PATIENT
  Age: 52 Year
  Sex: Female

DRUGS (1)
  1. QUESTRAN [Suspect]
     Indication: DIARRHOEA
     Route: 048
     Dates: end: 20110207

REACTIONS (1)
  - TOOTH EROSION [None]
